FAERS Safety Report 8227267-6 (Version None)
Quarter: 2012Q1

REPORT INFORMATION
  Report Type: 
  Country: None (occurrence: None)
  Receive Date: 20120322
  Receipt Date: 20120312
  Transmission Date: 20120608
  Serious: Yes (Other)
  Sender: FDA-Public Use
  Company Number: PHFR2012GB001712

PATIENT
  Age: 45 Year
  Sex: Male

DRUGS (3)
  1. CLOZAPINE [Suspect]
     Indication: SCHIZOPHRENIA
     Dosage: 300 MG,
     Route: 048
     Dates: start: 20120101, end: 20120221
  2. COLECALCIFEROL [Concomitant]
     Indication: METABOLIC DISORDER
     Dosage: 20000 IU,
     Route: 048
  3. ARIPIPRAZOLE [Concomitant]
     Indication: SCHIZOPHRENIA
     Dosage: 30 MG,
     Route: 048
     Dates: start: 20110101, end: 20120220

REACTIONS (9)
  - TACHYCARDIA [None]
  - LETHARGY [None]
  - LOWER RESPIRATORY TRACT INFECTION [None]
  - ELECTROCARDIOGRAM CHANGE [None]
  - MYOCARDITIS [None]
  - CREPITATIONS [None]
  - CARDIOMYOPATHY [None]
  - PYREXIA [None]
  - WHITE BLOOD CELL COUNT INCREASED [None]
